FAERS Safety Report 23077085 (Version 1)
Quarter: 2023Q4

REPORT INFORMATION
  Report Type: Spontaneous
  Country: CN (occurrence: None)
  Receive Date: 20231018
  Receipt Date: 20231018
  Transmission Date: 20240109
  Serious: Yes (Other)
  Sender: FDA-Public Use
  Company Number: 2023A234330

PATIENT
  Age: 25736 Day
  Sex: Male
  Weight: 60 kg

DRUGS (3)
  1. ESOMEPRAZOLE MAGNESIUM [Suspect]
     Active Substance: ESOMEPRAZOLE\ESOMEPRAZOLE MAGNESIUM\ESOMEPRAZOLE MAGNESIUM DIHYDRATE
     Indication: Chronic gastritis
     Route: 048
     Dates: start: 20230815, end: 20230905
  2. ASPIRIN [Concomitant]
     Active Substance: ASPIRIN
     Indication: Postoperative analgesia
     Route: 048
     Dates: start: 20230901, end: 20230901
  3. HYDROTALCITE [Concomitant]
     Active Substance: HYDROTALCITE
     Indication: Chronic gastritis
     Route: 048
     Dates: start: 20230813, end: 20230813

REACTIONS (2)
  - Cholangitis [Not Recovered/Not Resolved]
  - Vanishing bile duct syndrome [Unknown]

NARRATIVE: CASE EVENT DATE: 20230901
